FAERS Safety Report 18343406 (Version 1)
Quarter: 2020Q4

REPORT INFORMATION
  Report Type: Spontaneous
  Country: US (occurrence: US)
  Receive Date: 20201005
  Receipt Date: 20201005
  Transmission Date: 20210113
  Serious: Yes (Hospitalization)
  Sender: FDA-Public Use
  Company Number: US-BIOGEN-2020BI00928827

PATIENT
  Age: 48 Year
  Sex: Female

DRUGS (38)
  1. AVONEX [Suspect]
     Active Substance: INTERFERON BETA-1A
  2. CALCIUM CARBONATE VITAMIN D3 [Concomitant]
     Indication: PRODUCT USED FOR UNKNOWN INDICATION
     Route: 065
  3. AVONEX [Suspect]
     Active Substance: INTERFERON BETA-1A
     Route: 030
     Dates: start: 2011
  4. AVONEX [Suspect]
     Active Substance: INTERFERON BETA-1A
     Route: 030
     Dates: start: 2010
  5. AVONEX [Suspect]
     Active Substance: INTERFERON BETA-1A
  6. ASPIRIN. [Concomitant]
     Active Substance: ASPIRIN
     Indication: PRODUCT USED FOR UNKNOWN INDICATION
     Route: 065
  7. LIORESAL [Concomitant]
     Active Substance: BACLOFEN
     Indication: PRODUCT USED FOR UNKNOWN INDICATION
     Route: 065
  8. VITAMIN D3 [Concomitant]
     Active Substance: CHOLECALCIFEROL
     Indication: PRODUCT USED FOR UNKNOWN INDICATION
     Route: 065
  9. LOFIBRA [Concomitant]
     Active Substance: FENOFIBRATE
     Indication: PRODUCT USED FOR UNKNOWN INDICATION
     Route: 065
  10. MACROBID [Concomitant]
     Active Substance: NITROFURANTOIN\NITROFURANTOIN MONOHYDRATE
     Indication: PRODUCT USED FOR UNKNOWN INDICATION
     Route: 065
  11. POTASSIUM CITRATE. [Concomitant]
     Active Substance: POTASSIUM CITRATE
     Indication: PRODUCT USED FOR UNKNOWN INDICATION
     Route: 048
  12. PRAVACHOL [Concomitant]
     Active Substance: PRAVASTATIN SODIUM
     Indication: PRODUCT USED FOR UNKNOWN INDICATION
     Route: 065
  13. AVONEX [Suspect]
     Active Substance: INTERFERON BETA-1A
     Route: 030
  14. AVONEX [Suspect]
     Active Substance: INTERFERON BETA-1A
  15. CINNAMON. [Concomitant]
     Active Substance: CINNAMON
     Indication: PRODUCT USED FOR UNKNOWN INDICATION
     Route: 065
  16. VITAMIN B COMPLEX [Concomitant]
     Active Substance: CYANOCOBALAMIN\DEXPANTHENOL\NIACINAMIDE\PYRIDOXINE HYDROCHLORIDE\RIBOFLAVIN 5^-PHOSPHATE SODIUM\THIAMINE HYDROCHLORIDE\VITAMIN B COMPLEX
     Indication: PRODUCT USED FOR UNKNOWN INDICATION
     Route: 048
  17. AVONEX [Suspect]
     Active Substance: INTERFERON BETA-1A
  18. AVONEX [Suspect]
     Active Substance: INTERFERON BETA-1A
  19. VALIUM [Concomitant]
     Active Substance: DIAZEPAM
     Indication: PRODUCT USED FOR UNKNOWN INDICATION
     Route: 065
  20. ZESTRIL [Concomitant]
     Active Substance: LISINOPRIL
     Indication: PRODUCT USED FOR UNKNOWN INDICATION
     Route: 065
  21. TECFIDERA [Suspect]
     Active Substance: DIMETHYL FUMARATE
     Indication: MULTIPLE SCLEROSIS
     Route: 065
     Dates: start: 20161107
  22. AVONEX [Suspect]
     Active Substance: INTERFERON BETA-1A
  23. ZYRTEC [Concomitant]
     Active Substance: CETIRIZINE HYDROCHLORIDE
     Indication: PRODUCT USED FOR UNKNOWN INDICATION
     Route: 065
  24. KLONOPIN [Concomitant]
     Active Substance: CLONAZEPAM
     Indication: PRODUCT USED FOR UNKNOWN INDICATION
     Route: 065
  25. REMERON [Concomitant]
     Active Substance: MIRTAZAPINE
     Indication: PRODUCT USED FOR UNKNOWN INDICATION
     Route: 065
  26. AVONEX [Suspect]
     Active Substance: INTERFERON BETA-1A
  27. AMOXIL [Concomitant]
     Active Substance: AMOXICILLIN
     Indication: PRODUCT USED FOR UNKNOWN INDICATION
     Route: 065
  28. NEURONTIN [Concomitant]
     Active Substance: GABAPENTIN
     Indication: PRODUCT USED FOR UNKNOWN INDICATION
     Route: 065
  29. PRINIVIL [Concomitant]
     Active Substance: LISINOPRIL
     Indication: PRODUCT USED FOR UNKNOWN INDICATION
     Route: 065
  30. AVONEX [Suspect]
     Active Substance: INTERFERON BETA-1A
     Indication: MULTIPLE SCLEROSIS
     Route: 030
  31. AVONEX [Suspect]
     Active Substance: INTERFERON BETA-1A
  32. FOLIC ACID. [Concomitant]
     Active Substance: FOLIC ACID
     Indication: PRODUCT USED FOR UNKNOWN INDICATION
     Route: 048
  33. NIACIN. [Concomitant]
     Active Substance: NIACIN
     Indication: PRODUCT USED FOR UNKNOWN INDICATION
     Route: 065
  34. PYRIDIUM [Concomitant]
     Active Substance: PHENAZOPYRIDINE
     Indication: PRODUCT USED FOR UNKNOWN INDICATION
     Route: 065
  35. IMITREX [Concomitant]
     Active Substance: SUMATRIPTAN SUCCINATE
     Indication: PRODUCT USED FOR UNKNOWN INDICATION
     Route: 065
  36. AVONEX [Suspect]
     Active Substance: INTERFERON BETA-1A
  37. LIPITOR [Concomitant]
     Active Substance: ATORVASTATIN CALCIUM
     Indication: PRODUCT USED FOR UNKNOWN INDICATION
     Route: 065
  38. EFFEXOR [Concomitant]
     Active Substance: VENLAFAXINE HYDROCHLORIDE
     Indication: PRODUCT USED FOR UNKNOWN INDICATION
     Route: 065

REACTIONS (20)
  - Furuncle [Recovered/Resolved]
  - Cognitive disorder [Recovered/Resolved]
  - Mastitis [Recovered/Resolved]
  - Staphylococcal infection [Not Recovered/Not Resolved]
  - Breast cancer [Recovered/Resolved]
  - Stress [Not Recovered/Not Resolved]
  - Migraine [Not Recovered/Not Resolved]
  - Abdominal discomfort [Recovered/Resolved]
  - Balance disorder [Not Recovered/Not Resolved]
  - Musculoskeletal stiffness [Recovered/Resolved]
  - Diabetes mellitus [Recovered/Resolved]
  - Menopausal symptoms [Not Recovered/Not Resolved]
  - Pleural effusion [Recovered/Resolved]
  - Memory impairment [Not Recovered/Not Resolved]
  - Muscle twitching [Recovered/Resolved]
  - Bone contusion [Recovered/Resolved]
  - Body fat disorder [Recovered/Resolved]
  - Hyperlipidaemia [Recovered/Resolved]
  - Cyst [Not Recovered/Not Resolved]
  - Fatigue [Not Recovered/Not Resolved]

NARRATIVE: CASE EVENT DATE: 2012
